FAERS Safety Report 9111336 (Version 1)
Quarter: 2013Q1

REPORT INFORMATION
  Report Type: Spontaneous
  Country: US (occurrence: US)
  Receive Date: 20130219
  Receipt Date: 20130219
  Transmission Date: 20140127
  Serious: No
  Sender: FDA-Public Use
  Company Number: US-BRISTOL-MYERS SQUIBB COMPANY-16956153

PATIENT
  Age: 59 Year
  Sex: Female

DRUGS (2)
  1. ORENCIA [Suspect]
     Dosage: LAST INFUSION: 09AUG12,HIGHEST DOSE
     Route: 042
  2. METHOTREXATE [Suspect]
     Dosage: DISC ABOUT 6 WEEKS AGO

REACTIONS (2)
  - Hepatic function abnormal [Not Recovered/Not Resolved]
  - Neck pain [Not Recovered/Not Resolved]
